FAERS Safety Report 7348457-0 (Version None)
Quarter: 2011Q1

REPORT INFORMATION
  Report Type: 
  Country: None (occurrence: None)
  Receive Date: 20110313
  Receipt Date: 20110211
  Transmission Date: 20110831
  Serious: Yes (Hospitalization)
  Sender: FDA-Public Use
  Company Number: FR-B.I. PHARMACEUTICALS,INC./RIDGEFIELD-2011-FF-00151FF

PATIENT
  Age: 42 Year
  Sex: Female
  Weight: 95 kg

DRUGS (2)
  1. PRADAXA [Suspect]
     Indication: HIP ARTHROPLASTY
     Dosage: 220 MG
     Route: 048
     Dates: start: 20101208, end: 20101214
  2. METHOTREXATE [Suspect]
     Indication: PSORIATIC ARTHROPATHY
     Dosage: 0.2143 MG
     Route: 048

REACTIONS (3)
  - NEUTROPENIA [None]
  - LEUKOPENIA [None]
  - DRUG INTERACTION [None]
